FAERS Safety Report 17576624 (Version 3)
Quarter: 2021Q1

REPORT INFORMATION
  Report Type: Other
  Country: US (occurrence: US)
  Receive Date: 20200324
  Receipt Date: 20210320
  Transmission Date: 20210419
  Serious: No
  Sender: FDA-Public Use
  Company Number: US-ACORDA-ACO_163721_2020

PATIENT
  Sex: Female

DRUGS (2)
  1. XADAGO [Concomitant]
     Active Substance: SAFINAMIDE MESYLATE
     Indication: PRODUCT USED FOR UNKNOWN INDICATION
     Dosage: UNK
     Route: 065
  2. INBRIJA [Suspect]
     Active Substance: LEVODOPA
     Indication: PARKINSON^S DISEASE
     Dosage: 42 MILLIGRAM, 2 CAPSULES, PRN, NOT TO EXCEED 5 DOSES IN 1 DAY (ALSO 2 CAPSULES 5 TIMES A DAY OR AS N
     Dates: start: 20200202

REACTIONS (3)
  - Sputum discoloured [Unknown]
  - Cough [Unknown]
  - Headache [Unknown]
